FAERS Safety Report 7536878-2 (Version None)
Quarter: 2011Q2

REPORT INFORMATION
  Report Type: 
  Country: None (occurrence: None)
  Receive Date: 20110608
  Receipt Date: 20110608
  Transmission Date: 20111010
  Serious: Yes (Hospitalization)
  Sender: FDA-Public Use
  Company Number: None

PATIENT
  Sex: Male
  Weight: 89.6 kg

DRUGS (6)
  1. OXYCODONE HCL [Concomitant]
  2. TEMSIROLIMUS [Suspect]
     Indication: PROSTATE CANCER
     Dosage: 25 MG EVERY WEEK IV
     Route: 042
     Dates: start: 20110323, end: 20110504
  3. AVASTIN [Suspect]
     Indication: PROSTATE CANCER
     Dosage: 10 MG/KG EVERY 2 WKS IV
     Route: 042
     Dates: start: 20110330, end: 20110427
  4. OXYCONTIN [Concomitant]
  5. COMPAZINE [Concomitant]
  6. LORAZEPAM [Concomitant]

REACTIONS (3)
  - VOMITING [None]
  - NAUSEA [None]
  - DIARRHOEA [None]
